FAERS Safety Report 4375482-4 (Version None)
Quarter: 2004Q2

REPORT INFORMATION
  Report Type: 
  Country: None (occurrence: None)
  Receive Date: 20040607
  Receipt Date: 20040527
  Transmission Date: 20050107
  Serious: Yes (Death)
  Sender: FDA-Public Use
  Company Number: 206548

PATIENT
  Age: 1 Year
  Sex: Male
  Weight: 5.6 kg

DRUGS (4)
  1. NUTROPIN AQ [Suspect]
     Dosage: 0.3 MG, QD; SUBCUTANEOUS
     Route: 058
     Dates: start: 20040415, end: 20040503
  2. ZITHROMAX [Concomitant]
  3. PERIACTIN [Concomitant]
  4. ALBUTEROL INHALER (ALBUTEROL, ALBUTEROL SULFATE) [Concomitant]

REACTIONS (7)
  - ASTHENIA [None]
  - BRONCHITIS [None]
  - DECREASED APPETITE [None]
  - NASOPHARYNGITIS [None]
  - REFUSAL OF TREATMENT BY RELATIVE [None]
  - RESPIRATORY ARREST [None]
  - RESPIRATORY TRACT INFECTION [None]
